FAERS Safety Report 15076796 (Version 1)
Quarter: 2018Q2

REPORT INFORMATION
  Report Type: Spontaneous
  Country: US (occurrence: US)
  Receive Date: 20180627
  Receipt Date: 20180627
  Transmission Date: 20180711
  Serious: Yes (Hospitalization, Other)
  Sender: FDA-Public Use
  Company Number: US-PFIZER INC-2018255209

PATIENT
  Age: 71 Year
  Sex: Male
  Weight: 81.65 kg

DRUGS (1)
  1. RAPAMUNE [Suspect]
     Active Substance: SIROLIMUS
     Indication: RENAL TRANSPLANT
     Dosage: TWO 1 MG TABLETS BY MOUTH DAILY
     Route: 048
     Dates: start: 2008

REACTIONS (2)
  - Postoperative wound infection [Not Recovered/Not Resolved]
  - Cardiac failure congestive [Recovering/Resolving]

NARRATIVE: CASE EVENT DATE: 201804
